FAERS Safety Report 14746212 (Version 6)
Quarter: 2018Q3

REPORT INFORMATION
  Report Type: Spontaneous
  Country: US (occurrence: US)
  Receive Date: 20180411
  Receipt Date: 20180918
  Transmission Date: 20181010
  Serious: No
  Sender: FDA-Public Use
  Company Number: US-PFIZER INC-2018118308

PATIENT
  Age: 85 Year
  Sex: Female
  Weight: 71 kg

DRUGS (3)
  1. COREG [Concomitant]
     Active Substance: CARVEDILOL
     Indication: CARDIAC DISORDER
     Dosage: UNK
  2. SUTENT [Suspect]
     Active Substance: SUNITINIB MALATE
     Indication: GASTROINTESTINAL STROMAL TUMOUR
     Dosage: 12.5 MG, DAILY
     Dates: start: 20180328
  3. COREG [Concomitant]
     Active Substance: CARVEDILOL
     Dosage: UNK (INCREASED DOSE)

REACTIONS (16)
  - Pain in extremity [Not Recovered/Not Resolved]
  - Alopecia [Unknown]
  - Muscular weakness [Unknown]
  - Pain [Not Recovered/Not Resolved]
  - White blood cell count decreased [Unknown]
  - Middle insomnia [Unknown]
  - Fall [Unknown]
  - Skin discolouration [Unknown]
  - Blood glucose decreased [Unknown]
  - Arthropathy [Unknown]
  - Erythema [Unknown]
  - Drug dose omission [Unknown]
  - Burning sensation [Not Recovered/Not Resolved]
  - Contusion [Unknown]
  - Fatigue [Unknown]
  - Arthralgia [Unknown]

NARRATIVE: CASE EVENT DATE: 2018
